FAERS Safety Report 19572713 (Version 3)
Quarter: 2021Q4

REPORT INFORMATION
  Report Type: Report from Study
  Country: US (occurrence: US)
  Receive Date: 20210716
  Receipt Date: 20211011
  Transmission Date: 20220304
  Serious: No
  Sender: FDA-Public Use
  Company Number: NVSC2021US153579

PATIENT
  Sex: Male

DRUGS (1)
  1. ENTRESTO [Suspect]
     Active Substance: SACUBITRIL\VALSARTAN
     Indication: Cardiac failure
     Dosage: 1 DF, BID(49/51 MG)
     Route: 048

REACTIONS (4)
  - Throat irritation [Unknown]
  - Throat clearing [Unknown]
  - Seasonal allergy [Unknown]
  - Cough [Unknown]
